FAERS Safety Report 7335065-0 (Version None)
Quarter: 2011Q1

REPORT INFORMATION
  Report Type: 
  Country: None (occurrence: None)
  Receive Date: 20110307
  Receipt Date: 20110224
  Transmission Date: 20110831
  Serious: Yes (Other)
  Sender: FDA-Public Use
  Company Number: US-ROCHE-763632

PATIENT
  Sex: Male

DRUGS (2)
  1. MYCOPHENOLATE MOFETIL [Suspect]
     Route: 048
     Dates: start: 20090901
  2. CELLCEPT [Suspect]
     Route: 048
     Dates: start: 20040101, end: 20090101

REACTIONS (1)
  - KIDNEY TRANSPLANT REJECTION [None]
